FAERS Safety Report 16736025 (Version 2)
Quarter: 2019Q3

REPORT INFORMATION
  Report Type: Spontaneous
  Country: IT (occurrence: IT)
  Receive Date: 20190823
  Receipt Date: 20190904
  Transmission Date: 20191005
  Serious: Yes (Life-Threatening)
  Sender: FDA-Public Use
  Company Number: IT-MYLANLABS-2019M1078790

PATIENT
  Age: 71 Year
  Sex: Female
  Weight: 70 kg

DRUGS (2)
  1. METFORMIN [Suspect]
     Active Substance: METFORMIN HYDROCHLORIDE
     Indication: DIABETES MELLITUS
     Dosage: 1 DOSAGE FORM, QD
     Dates: start: 20190307, end: 20190311
  2. IOMERON [Suspect]
     Active Substance: IOMEPROL
     Indication: INVESTIGATION
     Dosage: 1 DOSAGE FORM, TOTAL
     Dates: start: 20190311, end: 20190311

REACTIONS (1)
  - Mitochondrial enzyme deficiency [Recovered/Resolved with Sequelae]

NARRATIVE: CASE EVENT DATE: 20190311
